FAERS Safety Report 7935994-0 (Version None)
Quarter: 2011Q4

REPORT INFORMATION
  Report Type: 
  Country: None (occurrence: None)
  Receive Date: 20111123
  Receipt Date: 20111116
  Transmission Date: 20120403
  Serious: Yes (Other)
  Sender: FDA-Public Use
  Company Number: ES-JNJFOC-20111107437

PATIENT
  Age: 47 Year
  Sex: Male

DRUGS (2)
  1. REMICADE [Suspect]
     Indication: PRODUCT USED FOR UNKNOWN INDICATION
     Route: 042
     Dates: start: 20110616
  2. REMICADE [Suspect]
     Route: 042
     Dates: start: 20110602

REACTIONS (7)
  - PRURITUS [None]
  - DYSPHAGIA [None]
  - INFUSION RELATED REACTION [None]
  - RASH ERYTHEMATOUS [None]
  - MYALGIA [None]
  - ABDOMINAL PAIN UPPER [None]
  - DIARRHOEA [None]
